FAERS Safety Report 6086710-1 (Version None)
Quarter: 2009Q1

REPORT INFORMATION
  Report Type: 
  Country: None (occurrence: None)
  Receive Date: 20090223
  Receipt Date: 20090216
  Transmission Date: 20090719
  Serious: Yes (Other)
  Sender: FDA-Public Use
  Company Number: PHHY2009DE05644

PATIENT
  Sex: Female

DRUGS (2)
  1. ZOMETA [Suspect]
     Dosage: 4 MG EVERY 4 WEEKS
     Route: 042
     Dates: start: 20030401, end: 20060601
  2. ZOMETA [Suspect]
     Dosage: 2 MG EVERY 4 WEEKS
     Route: 042
     Dates: start: 20060701, end: 20080801

REACTIONS (2)
  - OSTEONECROSIS [None]
  - TOOTH EXTRACTION [None]
